FAERS Safety Report 9325846 (Version 1)
Quarter: 2013Q2

REPORT INFORMATION
  Report Type: Spontaneous
  Country: US (occurrence: US)
  Receive Date: 20130604
  Receipt Date: 20130604
  Transmission Date: 20140414
  Serious: Yes (Other)
  Sender: FDA-Public Use
  Company Number: US-JNJFOC-20130516583

PATIENT
  Sex: Female

DRUGS (3)
  1. FENTANYL TRANSDERMAL SYSTEM [Suspect]
     Indication: PRODUCT USED FOR UNKNOWN INDICATION
     Route: 062
  2. KLONOPIN [Concomitant]
     Route: 065
  3. ADVAIR [Concomitant]
     Route: 065

REACTIONS (1)
  - Parkinson^s disease [Not Recovered/Not Resolved]
